FAERS Safety Report 6344210-5 (Version None)
Quarter: 2009Q3

REPORT INFORMATION
  Report Type: 
  Country: None (occurrence: None)
  Receive Date: 20090903
  Receipt Date: 20090903
  Transmission Date: 20100115
  Serious: Yes (Life-Threatening, Other)
  Sender: FDA-Public Use
  Company Number: None

PATIENT
  Sex: Female
  Weight: 77.1115 kg

DRUGS (2)
  1. CYMBALTA [Suspect]
     Indication: DEPRESSION
     Dosage: 60MG 1 X DAY
     Dates: start: 20050101, end: 20090908
  2. CYMBALTA [Suspect]
     Indication: PAIN
     Dosage: 60MG 1 X DAY
     Dates: start: 20050101, end: 20090908

REACTIONS (5)
  - CONDITION AGGRAVATED [None]
  - CRYING [None]
  - DEPRESSION [None]
  - MORBID THOUGHTS [None]
  - PERSONALITY CHANGE [None]
